FAERS Safety Report 25287756 (Version 2)
Quarter: 2025Q4

REPORT INFORMATION
  Report Type: Spontaneous
  Country: JP (occurrence: JP)
  Receive Date: 20250509
  Receipt Date: 20251007
  Transmission Date: 20260118
  Serious: No
  Sender: ELI LILLY AND COMPANY
  Company Number: US-ELI_LILLY_AND_COMPANY-US202505001035

PATIENT
  Age: 65 Year
  Sex: Male

DRUGS (10)
  1. TADALAFIL [Suspect]
     Active Substance: TADALAFIL
     Indication: Pulmonary arterial hypertension
     Dosage: 0.5 DOSAGE FORM, DAILY
     Route: 065
     Dates: start: 2024
  2. TREPROSTINIL [Suspect]
     Active Substance: TREPROSTINIL
     Indication: Pulmonary arterial hypertension
     Dosage: 18 UG, EVERY 6 HRS
     Route: 055
     Dates: start: 20240411
  3. TREPROSTINIL [Suspect]
     Active Substance: TREPROSTINIL
     Dosage: 30 UG, EVERY 6 HRS
     Route: 055
     Dates: start: 2024, end: 2024
  4. TREPROSTINIL [Suspect]
     Active Substance: TREPROSTINIL
     Dosage: 24 UG, EVERY 6 HRS
     Route: 055
     Dates: start: 2024
  5. TREPROSTINIL [Suspect]
     Active Substance: TREPROSTINIL
     Dosage: 36 UG, EVERY 6 HRS
     Route: 055
  6. OPSUMIT [Concomitant]
     Active Substance: MACITENTAN
     Indication: Product used for unknown indication
     Dosage: UNK, UNKNOWN
     Route: 065
  7. AZOSEMIDE [Concomitant]
     Active Substance: AZOSEMIDE
     Indication: Product used for unknown indication
     Dosage: UNK, UNKNOWN
     Route: 065
  8. ENALAPRIL [Concomitant]
     Active Substance: ENALAPRIL
     Indication: Product used for unknown indication
     Dosage: 5 MG, DAILY
     Route: 065
  9. ENALAPRIL [Concomitant]
     Active Substance: ENALAPRIL
     Dosage: 2.5 MG, DAILY
     Route: 065
  10. IMATINIB [Concomitant]
     Active Substance: IMATINIB

REACTIONS (7)
  - Oropharyngeal pain [Unknown]
  - Coronavirus infection [Recovering/Resolving]
  - Pulmonary hypertension [Not Recovered/Not Resolved]
  - Cough [Not Recovered/Not Resolved]
  - Dizziness [Not Recovered/Not Resolved]
  - Ocular hyperaemia [Unknown]
  - Blood pressure systolic decreased [Not Recovered/Not Resolved]

NARRATIVE: CASE EVENT DATE: 20240101
